FAERS Safety Report 10753999 (Version 1)
Quarter: 2015Q1

REPORT INFORMATION
  Report Type: Spontaneous
  Country: US (occurrence: None)
  Receive Date: 20150129
  Receipt Date: 20150129
  Transmission Date: 20150721
  Serious: Yes (Hospitalization)
  Sender: FDA-Public Use
  Company Number: 2723009

PATIENT
  Age: 69 Year
  Sex: Female

DRUGS (13)
  1. PREDNISOLONE. [Concomitant]
     Active Substance: PREDNISOLONE
  2. METOPROLOL SUCCINATE. [Concomitant]
     Active Substance: METOPROLOL SUCCINATE
  3. GABAPENTIN. [Concomitant]
     Active Substance: GABAPENTIN
  4. MIDODRINE [Concomitant]
     Active Substance: MIDODRINE
  5. CITALOPRAM [Concomitant]
     Active Substance: CITALOPRAM HYDROBROMIDE
  6. AMIODARONE [Suspect]
     Active Substance: AMIODARONE
     Indication: ATRIAL FIBRILLATION
  7. FLUTICASONE [Concomitant]
     Active Substance: FLUTICASONE\FLUTICASONE PROPIONATE
  8. LORATADINE. [Concomitant]
     Active Substance: LORATADINE
  9. OXYCODONE AND ACETAMINOPHEN [Concomitant]
     Active Substance: ACETAMINOPHEN\OXYCODONE\OXYCODONE HYDROCHLORIDE
  10. WARFARIN [Concomitant]
     Active Substance: WARFARIN
  11. LIDODERM [Concomitant]
     Active Substance: LIDOCAINE
  12. ASPIRIN. [Concomitant]
     Active Substance: ASPIRIN
  13. ALPRAZOLAM. [Concomitant]
     Active Substance: ALPRAZOLAM

REACTIONS (6)
  - Anaemia [None]
  - Respiratory acidosis [None]
  - Myxoedema coma [None]
  - Sinus bradycardia [None]
  - Cardiomegaly [None]
  - Leukocytosis [None]
